FAERS Safety Report 4327538-X (Version None)
Quarter: 2004Q1

REPORT INFORMATION
  Report Type: 
  Country: None (occurrence: None)
  Receive Date: 20040330
  Receipt Date: 20040330
  Transmission Date: 20041129
  Serious: Yes (Death)
  Sender: FDA-Public Use
  Company Number: None

PATIENT
  Age: 53 Year
  Sex: Female
  Weight: 61.2356 kg

DRUGS (7)
  1. LEXAPRO [Suspect]
     Indication: DEPRESSION
     Dosage: ONCE A DAY ORAL
     Route: 048
     Dates: start: 20040115, end: 20040126
  2. WELLBUTRIN [Suspect]
     Indication: DEPRESSION
     Dosage: ONCE A DAY ORAL
     Route: 048
     Dates: start: 20040122, end: 20040126
  3. AMBIEN [Concomitant]
  4. BLOOD PRESSURE MEDICATION [Concomitant]
  5. TRAZIDONE [Concomitant]
  6. MAXALT [Concomitant]
  7. FLONASE [Concomitant]

REACTIONS (4)
  - AGITATION [None]
  - ANXIETY [None]
  - COMPLETED SUICIDE [None]
  - INTENTIONAL SELF-INJURY [None]
